FAERS Safety Report 11395350 (Version 1)
Quarter: 2015Q3

REPORT INFORMATION
  Report Type: Spontaneous
  Country: None (occurrence: None)
  Receive Date: 20150817
  Receipt Date: 20150817
  Transmission Date: 20151125
  Serious: Yes (Life-Threatening, Hospitalization)
  Sender: FDA-Public Use
  Company Number: None

PATIENT
  Age: 49 Year
  Sex: Female
  Weight: 67.13 kg

DRUGS (19)
  1. FLUOXETINE [Concomitant]
     Active Substance: FLUOXETINE\FLUOXETINE HYDROCHLORIDE
  2. GLARGINE [Concomitant]
  3. NEXIUM [Concomitant]
     Active Substance: ESOMEPRAZOLE MAGNESIUM
  4. GEODON [Concomitant]
     Active Substance: ZIPRASIDONE HYDROCHLORIDE\ZIPRASIDONE MESYLATE
  5. LIPITOR [Concomitant]
     Active Substance: ATORVASTATIN CALCIUM
  6. KEPPRA [Concomitant]
     Active Substance: LEVETIRACETAM
  7. ACTOS [Concomitant]
     Active Substance: PIOGLITAZONE HYDROCHLORIDE
  8. ATIVAN [Concomitant]
     Active Substance: LORAZEPAM
  9. BUTALBITAL COMPOUND [Concomitant]
     Active Substance: ASPIRIN\BUTALBITAL\CAFFEINE
  10. STARLIX [Concomitant]
     Active Substance: NATEGLINIDE
  11. PHENYTOIN 100 MG [Suspect]
     Active Substance: PHENYTOIN
     Indication: CONVULSION PROPHYLAXIS
     Dosage: 3 CAPSULE
     Route: 048
     Dates: start: 20150723, end: 20150727
  12. ELIQUIS [Concomitant]
     Active Substance: APIXABAN
  13. ASPIRIN. [Concomitant]
     Active Substance: ASPIRIN
  14. GABAPENTIN. [Concomitant]
     Active Substance: GABAPENTIN
  15. DILANTIN [Concomitant]
     Active Substance: PHENYTOIN
  16. ZOFRAN [Concomitant]
     Active Substance: ONDANSETRON HYDROCHLORIDE
  17. APIXABAN 5 MG [Suspect]
     Active Substance: APIXABAN
     Indication: PULMONARY EMBOLISM
     Route: 048
     Dates: start: 20150723, end: 20150727
  18. NITROFURANTOIN MACROCRYSTALS [Concomitant]
     Active Substance: NITROFURANTOIN
  19. FISH OIL [Concomitant]
     Active Substance: FISH OIL

REACTIONS (4)
  - Seizure [None]
  - Treatment failure [None]
  - Pulmonary embolism [None]
  - Drug interaction [None]

NARRATIVE: CASE EVENT DATE: 20150727
